FAERS Safety Report 9764178 (Version 2)
Quarter: 2014Q2

REPORT INFORMATION
  Report Type: Spontaneous
  Country: IT (occurrence: IT)
  Receive Date: 20131216
  Receipt Date: 20140423
  Transmission Date: 20141212
  Serious: Yes (Hospitalization)
  Sender: FDA-Public Use
  Company Number: PHHY2013IT146495

PATIENT
  Age: 59 Year
  Sex: Female

DRUGS (7)
  1. ZOMETA [Suspect]
     Dosage: 4 MG, MONTHLY
     Route: 042
     Dates: start: 20080120, end: 20121231
  2. OXYCONTIN [Concomitant]
     Dosage: 10 MG, UNK
     Route: 048
  3. PECFENT [Concomitant]
     Dosage: 100 UG, UNK
  4. LYRICA [Concomitant]
     Dosage: 25 MG, UNK
     Route: 048
  5. NORVASC [Concomitant]
     Dosage: 10 MG, UNK
     Route: 048
  6. CREON [Concomitant]
     Dosage: 25000 IU/KG, UNK
  7. ATENSIL [Concomitant]
     Dosage: 4 MG, UNK
     Route: 048

REACTIONS (4)
  - Osteonecrosis of jaw [Not Recovered/Not Resolved]
  - Pain in jaw [Unknown]
  - Paraesthesia [Unknown]
  - Tooth abscess [Unknown]
